FAERS Safety Report 9184834 (Version 1)
Quarter: 2013Q1

REPORT INFORMATION
  Report Type: Spontaneous
  Country: US (occurrence: US)
  Receive Date: 20130325
  Receipt Date: 20130325
  Transmission Date: 20140127
  Serious: No
  Sender: FDA-Public Use
  Company Number: US-BRISTOL-MYERS SQUIBB COMPANY-16488223

PATIENT
  Age: 51 Year
  Sex: Female
  Weight: 53.51 kg

DRUGS (2)
  1. ERBITUX [Suspect]
     Indication: NON-SMALL CELL LUNG CANCER
     Dosage: TREATMENT IN CYCLES DESCRIBED AS 3 WEEKS ON AND 1 OFF. RECEIVED TWICE WITHIN 3 WEEKS.
     Dates: start: 201112
  2. NAVELBINE [Suspect]
     Dosage: EACH WEEK DURING ON CYCLE.

REACTIONS (5)
  - Trichiasis [Unknown]
  - Rash pustular [Unknown]
  - Skin ulcer [Unknown]
  - Inflammation [Unknown]
  - Skin fissures [Unknown]
